FAERS Safety Report 7107406-0 (Version None)
Quarter: 2010Q4

REPORT INFORMATION
  Report Type: 
  Country: None (occurrence: None)
  Receive Date: 20101111
  Receipt Date: 20101111
  Transmission Date: 20110411
  Serious: Yes (Other)
  Sender: FDA-Public Use
  Company Number: None

PATIENT
  Age: 36 Year
  Sex: Female
  Weight: 51.7101 kg

DRUGS (1)
  1. MIRENA [Suspect]
     Dates: start: 20080101, end: 20080701

REACTIONS (3)
  - ENDOMETRIOSIS [None]
  - HYSTERECTOMY [None]
  - OVARIAN CYST [None]
